FAERS Safety Report 6076672-5 (Version None)
Quarter: 2009Q1

REPORT INFORMATION
  Report Type: 
  Country: None (occurrence: None)
  Receive Date: 20090213
  Receipt Date: 20090202
  Transmission Date: 20090719
  Serious: Yes (Other)
  Sender: FDA-Public Use
  Company Number: PHHY2009AU04176

PATIENT
  Sex: Male

DRUGS (2)
  1. TASIGNA [Suspect]
     Indication: CHRONIC MYELOID LEUKAEMIA
     Dosage: UNK
     Dates: start: 20080701
  2. TASIGNA [Suspect]
     Dosage: 400 MG, UNK

REACTIONS (2)
  - ELECTROCARDIOGRAM QT INTERVAL ABNORMAL [None]
  - MUSCLE SPASMS [None]
